FAERS Safety Report 21332291 (Version 1)
Quarter: 2022Q3

REPORT INFORMATION
  Report Type: Spontaneous
  Country: KR (occurrence: None)
  Receive Date: 20220914
  Receipt Date: 20220914
  Transmission Date: 20221027
  Serious: Yes (Hospitalization, Other)
  Sender: FDA-Public Use
  Company Number: KR-MICRO LABS LIMITED-ML2022-04579

PATIENT
  Age: 15 Year
  Sex: Male
  Weight: 75 kg

DRUGS (2)
  1. DIPHENHYDRAMINE HYDROCHLORIDE [Suspect]
     Active Substance: DIPHENHYDRAMINE HYDROCHLORIDE
     Dosage: 10 TABLETS
  2. ACETAMINOPHEN [Suspect]
     Active Substance: ACETAMINOPHEN
     Dosage: 35 TABLETS

REACTIONS (4)
  - Suicide attempt [Unknown]
  - Depressed level of consciousness [Unknown]
  - Nausea [Unknown]
  - Intentional overdose [Unknown]
